FAERS Safety Report 21631579 (Version 1)
Quarter: 2022Q4

REPORT INFORMATION
  Report Type: Spontaneous
  Country: US (occurrence: US)
  Receive Date: 20221123
  Receipt Date: 20221123
  Transmission Date: 20230112
  Serious: No
  Sender: FDA-Public Use
  Company Number: US-ORGANON-O2211USA000693

PATIENT
  Sex: Female

DRUGS (1)
  1. NEXPLANON [Suspect]
     Active Substance: ETONOGESTREL
     Indication: Contraception
     Dosage: 1 IMPLANT, LEFT ARM, FOR 4 YEARS
     Route: 059
     Dates: start: 201910

REACTIONS (5)
  - Vaginal haemorrhage [Not Recovered/Not Resolved]
  - Nausea [Not Recovered/Not Resolved]
  - Pregnancy test false positive [Unknown]
  - Incorrect product administration duration [Unknown]
  - Product prescribing issue [Unknown]

NARRATIVE: CASE EVENT DATE: 20191001
